FAERS Safety Report 5445619-4 (Version None)
Quarter: 2007Q3

REPORT INFORMATION
  Report Type: 
  Country: None (occurrence: None)
  Receive Date: 20070906
  Receipt Date: 20070828
  Transmission Date: 20080115
  Serious: Yes (Hospitalization, Other)
  Sender: FDA-Public Use
  Company Number: BE-ABBOTT-07P-013-0372937-00

PATIENT
  Sex: Female

DRUGS (19)
  1. NORVIR [Suspect]
     Indication: HIV INFECTION
     Dates: start: 20070111
  2. NORVIR [Suspect]
     Dates: start: 20060303, end: 20061111
  3. FOSAMPRENAVIR [Concomitant]
     Indication: HIV INFECTION
     Dates: start: 20060303, end: 20061111
  4. FOSAMPRENAVIR [Concomitant]
     Dates: start: 20070111
  5. TENOFOVIR DISOPROXIL FUMARATE [Concomitant]
     Indication: HIV INFECTION
     Dates: start: 20060303, end: 20061111
  6. TENOFOVIR DISOPROXIL FUMARATE [Concomitant]
     Dates: start: 20070111
  7. ABACAVIR SULFATE W/LAMIVUDINE [Concomitant]
     Indication: HIV INFECTION
     Dates: start: 20060303, end: 20061111
  8. ABACAVIR SULFATE W/LAMIVUDINE [Concomitant]
     Dates: start: 20070111
  9. SPIRONOLACTONE [Concomitant]
     Indication: HYPERTENSION
     Dates: start: 20051013
  10. AUGMENTIN '125' [Concomitant]
     Indication: DRUG USE FOR UNKNOWN INDICATION
  11. DOMINAL FORTE [Concomitant]
     Indication: DRUG USE FOR UNKNOWN INDICATION
  12. METHYLPREDNISOLONE 16MG TAB [Concomitant]
     Indication: DRUG USE FOR UNKNOWN INDICATION
  13. VALORON N [Concomitant]
     Indication: DRUG USE FOR UNKNOWN INDICATION
  14. BROMAZEPAM [Concomitant]
     Indication: DRUG USE FOR UNKNOWN INDICATION
  15. FOLIC ACID [Concomitant]
     Indication: DRUG USE FOR UNKNOWN INDICATION
  16. SPIRALEXA [Concomitant]
     Indication: DRUG USE FOR UNKNOWN INDICATION
  17. LEVOTHYROXINE SODIUM [Concomitant]
     Indication: DRUG USE FOR UNKNOWN INDICATION
  18. DOMPERIDONE [Concomitant]
     Indication: DRUG USE FOR UNKNOWN INDICATION
  19. THIAMINE HCL [Concomitant]
     Indication: DRUG USE FOR UNKNOWN INDICATION

REACTIONS (11)
  - ALCOHOL POISONING [None]
  - ALCOHOLISM [None]
  - ASTHENIA [None]
  - COMA [None]
  - CONFUSIONAL STATE [None]
  - COUGH [None]
  - DRUG TOXICITY [None]
  - LUNG INFILTRATION [None]
  - PNEUMONIA STREPTOCOCCAL [None]
  - PRODUCTIVE COUGH [None]
  - PYREXIA [None]
